FAERS Safety Report 20769561 (Version 2)
Quarter: 2024Q4

REPORT INFORMATION
  Report Type: Spontaneous
  Country: JP (occurrence: JP)
  Receive Date: 20220429
  Receipt Date: 20241025
  Transmission Date: 20250115
  Serious: Yes (Other)
  Sender: ALEXION PHARMACEUTICALS
  Company Number: 2022A161995

PATIENT
  Age: 58 Year

DRUGS (12)
  1. LYNPARZA [Suspect]
     Active Substance: OLAPARIB
     Indication: Hormone-refractory prostate cancer
     Dosage: 300 MILLIGRAM, BID
  2. LYNPARZA [Suspect]
     Active Substance: OLAPARIB
     Dosage: 300 MILLIGRAM, BID
  3. LYNPARZA [Suspect]
     Active Substance: OLAPARIB
     Dosage: 300 MILLIGRAM, BID
  4. LYNPARZA [Suspect]
     Active Substance: OLAPARIB
     Dosage: 300 MILLIGRAM, BID
  5. DOMPERIDONE [Concomitant]
     Active Substance: DOMPERIDONE
     Dosage: 10 MILLIGRAM, TID
  6. DOMPERIDONE [Concomitant]
     Active Substance: DOMPERIDONE
     Dosage: 10 MILLIGRAM, TID
  7. DOMPERIDONE [Concomitant]
     Active Substance: DOMPERIDONE
     Dosage: 10 MILLIGRAM, TID
  8. DOMPERIDONE [Concomitant]
     Active Substance: DOMPERIDONE
     Dosage: 10 MILLIGRAM, TID
  9. LH-RH [Concomitant]
     Indication: Hormone-refractory prostate cancer
     Dosage: DOSE UNKNOWN
     Route: 065
  10. LH-RH [Concomitant]
     Indication: Hormone-refractory prostate cancer
     Dosage: DOSE UNKNOWN
  11. LH-RH [Concomitant]
     Dosage: DOSE UNKNOWN
     Route: 065
  12. LH-RH [Concomitant]
     Dosage: DOSE UNKNOWN

REACTIONS (3)
  - Prostatic specific antigen increased [Unknown]
  - Malignant neoplasm progression [Unknown]
  - Nausea [Unknown]
